FAERS Safety Report 4359600-X (Version None)
Quarter: 2004Q2

REPORT INFORMATION
  Report Type: 
  Country: None (occurrence: None)
  Receive Date: 20040518
  Receipt Date: 20040401
  Transmission Date: 20050107
  Serious: Yes (Hospitalization)
  Sender: FDA-Public Use
  Company Number: US-AMGEN-US071317

PATIENT
  Sex: Male
  Weight: 100 kg

DRUGS (9)
  1. ETANERCEPT [Suspect]
     Indication: ANKYLOSING SPONDYLITIS
     Route: 058
     Dates: start: 20020523, end: 20040330
  2. FLUVOXAMINE MALEATE [Concomitant]
     Route: 048
     Dates: start: 20040305
  3. ACCUPRIL [Concomitant]
     Route: 048
  4. KLONOPIN [Concomitant]
     Route: 048
     Dates: start: 20040308
  5. DEMADEX [Concomitant]
     Route: 048
     Dates: start: 20040322
  6. FLOMAX [Concomitant]
     Route: 048
  7. NORVASC [Concomitant]
     Route: 048
  8. OXYCONTIN [Concomitant]
     Route: 048
  9. ULTRACET [Concomitant]

REACTIONS (2)
  - DIVERTICULAR PERFORATION [None]
  - LARGE INTESTINE PERFORATION [None]
